FAERS Safety Report 15423293 (Version 1)
Quarter: 2018Q3

REPORT INFORMATION
  Report Type: Spontaneous
  Country: US (occurrence: US)
  Receive Date: 20180921
  Receipt Date: 20180921
  Transmission Date: 20181010
  Serious: Yes (Other)
  Sender: FDA-Public Use
  Company Number: None

PATIENT
  Age: 20 Year
  Sex: Female
  Weight: 66.68 kg

DRUGS (1)
  1. SKYLA [Suspect]
     Active Substance: LEVONORGESTREL
     Dates: start: 20170606

REACTIONS (3)
  - Device breakage [None]
  - Maternal exposure during pregnancy [None]
  - Pregnancy with contraceptive device [None]

NARRATIVE: CASE EVENT DATE: 20180917
